FAERS Safety Report 5258475-4 (Version None)
Quarter: 2007Q1

REPORT INFORMATION
  Report Type: 
  Country: None (occurrence: None)
  Receive Date: 20070308
  Receipt Date: 20070223
  Transmission Date: 20070707
  Serious: Yes (Other)
  Sender: FDA-Public Use
  Company Number: PHNU2006DE04189

PATIENT
  Age: 67 Year
  Sex: Male

DRUGS (13)
  1. ZOMETA [Suspect]
     Indication: MULTIPLE MYELOMA
     Dosage: 4 MG, QMO
     Route: 042
     Dates: start: 20010901
  2. DEXAMETHASONE [Suspect]
     Indication: MULTIPLE MYELOMA
     Dosage: 20 MG DAY 1, 2; DAY 4, 5; DAY 8, 9; 11, 12
     Route: 065
     Dates: start: 20060701, end: 20061101
  3. DEXAMETHASONE [Suspect]
     Dosage: 40 MG OVER 4 DAYS; 6 CYCLES
     Route: 065
     Dates: start: 20010901, end: 20020301
  4. VINCRISTINE [Concomitant]
     Indication: MULTIPLE MYELOMA
     Dosage: 2 MG, UNK; 6 CYCLES
     Route: 065
     Dates: start: 20010901, end: 20020301
  5. IDARUBICIN HCL [Concomitant]
     Indication: MULTIPLE MYELOMA
     Dosage: 8 MG  OVER 4 DAYS; 6 CYCLES
     Route: 065
     Dates: start: 20010901, end: 20020301
  6. INTERFERON [Concomitant]
     Indication: MULTIPLE MYELOMA
     Dosage: 4.5 MIO IU 3 TIMES A WEEK
     Route: 065
     Dates: start: 20020301, end: 20020601
  7. BENDAMUSTINE [Concomitant]
     Indication: MULTIPLE MYELOMA
     Dosage: 120 MG/M2 ON DAY 1 AND 2; 6 CYCLES
     Route: 065
     Dates: start: 20020601, end: 20031001
  8. PREDNISOLONE [Concomitant]
     Indication: MULTIPLE MYELOMA
     Dosage: 60 MG/M2 DAY 1 TO 4; 6 CYCLES
     Route: 065
     Dates: start: 20020601, end: 20031001
  9. VELCADE [Concomitant]
     Indication: MULTIPLE MYELOMA
     Dosage: 1.3 MG/M2 ON DAY 1, 4, 8, 11
     Route: 065
     Dates: start: 20060701, end: 20061101
  10. DURAGESIC-100 [Concomitant]
     Route: 062
  11. ARCOXIA [Concomitant]
     Route: 048
  12. ORAMORPH SR [Concomitant]
     Dosage: UNK, PRN
     Route: 048
  13. EPOGEN [Concomitant]
     Route: 065
     Dates: start: 20061001

REACTIONS (6)
  - BIOPSY SITE UNSPECIFIED ABNORMAL [None]
  - DENTAL OPERATION [None]
  - JAW OPERATION [None]
  - LOCALISED INFECTION [None]
  - OSTEONECROSIS [None]
  - PURULENT DISCHARGE [None]
